FAERS Safety Report 20136163 (Version 1)
Quarter: 2021Q4

REPORT INFORMATION
  Report Type: Spontaneous
  Country: FR (occurrence: FR)
  Receive Date: 20211201
  Receipt Date: 20211201
  Transmission Date: 20220304
  Serious: Yes (Hospitalization)
  Sender: FDA-Public Use
  Company Number: FR-CASPER PHARMA LLC-2021CAS000631

PATIENT
  Age: 21 Year
  Sex: Male
  Weight: 52 kg

DRUGS (6)
  1. BISMUTH SUBSALICYLATE\METRONIDAZOLE\TETRACYCLINE HYDROCHLORIDE [Suspect]
     Active Substance: BISMUTH SUBSALICYLATE\METRONIDAZOLE\TETRACYCLINE HYDROCHLORIDE
     Indication: Dental care
     Dosage: 250 MILLIGRAM, QD
     Route: 048
  2. SPIRAMYCIN [Suspect]
     Active Substance: SPIRAMYCIN
     Indication: Dental care
     Dosage: 1500000 INTERNATIONAL UNIT, QD
     Route: 048
  3. PERICIAZINE [Concomitant]
     Active Substance: PERICIAZINE
     Indication: Cockayne^s syndrome
     Dosage: 75 MILLIGRAM, QD
     Route: 065
  4. TIAPRIDE [Concomitant]
     Active Substance: TIAPRIDE
     Indication: Cockayne^s syndrome
     Dosage: 400 MILLIGRAM, QD
     Route: 065
  5. TRIMEPRAZINE [Concomitant]
     Active Substance: TRIMEPRAZINE
     Indication: Cockayne^s syndrome
     Dosage: 5 MILLIGRAM, QD
     Route: 065
  6. LORMETAZEPAM [Concomitant]
     Active Substance: LORMETAZEPAM
     Indication: Cockayne^s syndrome
     Dosage: 2 MILLIGRAM, QD
     Route: 065

REACTIONS (1)
  - Drug-induced liver injury [Recovered/Resolved]
